FAERS Safety Report 4930224-6 (Version None)
Quarter: 2006Q1

REPORT INFORMATION
  Report Type: 
  Country: None (occurrence: None)
  Receive Date: 20060302
  Receipt Date: 20060220
  Transmission Date: 20060701
  Serious: Yes (Other)
  Sender: FDA-Public Use
  Company Number: NO-JNJFOC-20041203760

PATIENT
  Sex: Female

DRUGS (13)
  1. REMICADE [Suspect]
     Indication: RHEUMATOID ARTHRITIS
     Dosage: 17 INFUSIONS
     Route: 042
  2. SANDIMMUNE [Suspect]
     Indication: RHEUMATOID ARTHRITIS
     Route: 048
  3. CELESTON [Concomitant]
     Dosage: 1ML WITH 3MG BETAMETHASONE ACETATE +3MG BETAMETHASONE
     Route: 030
  4. PREDNISOLONE [Concomitant]
  5. VIOXX [Concomitant]
     Dosage: STOPPED PRIOR TO 21-OCT-2004 DUE TO MEDIA ATTENTION ON CARDIOVASCULAR EVENTS
     Route: 048
  6. NEXIUM [Concomitant]
  7. PARALGIN FORTE [Concomitant]
     Route: 048
  8. PARALGIN FORTE [Concomitant]
     Dosage: COMBINATION TABLET CODEINE 30MG + PARACETAMOL 400MG
     Route: 048
  9. SOBRIL [Concomitant]
     Route: 048
  10. CALCIGRAN FORTE [Concomitant]
  11. CALCIGRAN FORTE [Concomitant]
  12. CALCIGRAN FORTE [Concomitant]
  13. CALCIGRAN FORTE [Concomitant]

REACTIONS (5)
  - BOWEN'S DISEASE [None]
  - LICHENOID KERATOSIS [None]
  - PARAKERATOSIS [None]
  - SKIN LESION [None]
  - SQUAMOUS CELL CARCINOMA [None]
